FAERS Safety Report 8501042-7 (Version None)
Quarter: 2012Q2

REPORT INFORMATION
  Report Type: 
  Country: None (occurrence: None)
  Receive Date: 20120405
  Receipt Date: 20110411
  Transmission Date: 20120825
  Serious: Yes (Other)
  Sender: FDA-Public Use
  Company Number: PHHY2011US13325

PATIENT
  Age: 56 Year
  Sex: Female
  Weight: 72 kg

DRUGS (1)
  1. RECLAST [Suspect]
     Dosage: 5 MG/100 ML, INFUSION

REACTIONS (10)
  - VOMITING [None]
  - HEADACHE [None]
  - BONE PAIN [None]
  - ARTHRITIS [None]
  - ARTHRALGIA [None]
  - PAIN [None]
  - OEDEMA PERIPHERAL [None]
  - PYREXIA [None]
  - NAUSEA [None]
  - MYALGIA [None]
